FAERS Safety Report 25424891 (Version 1)
Quarter: 2025Q2

REPORT INFORMATION
  Report Type: Spontaneous
  Country: CN (occurrence: CN)
  Receive Date: 20250611
  Receipt Date: 20250611
  Transmission Date: 20250717
  Serious: Yes (Other)
  Sender: ROCHE
  Company Number: CN-BoehringerIngelheim-2025-BI-075391

PATIENT
  Age: 82 Year
  Sex: Female
  Weight: 64.0 kg

DRUGS (1)
  1. ALTEPLASE [Suspect]
     Active Substance: ALTEPLASE
     Indication: Cerebral infarction
     Route: 042
     Dates: start: 20250519, end: 20250519

REACTIONS (2)
  - Cerebral haematoma [Recovering/Resolving]
  - Lividity [Recovering/Resolving]

NARRATIVE: CASE EVENT DATE: 20250519
